FAERS Safety Report 6386253-1 (Version None)
Quarter: 2009Q4

REPORT INFORMATION
  Report Type: 
  Country: None (occurrence: None)
  Receive Date: 20091002
  Receipt Date: 20090924
  Transmission Date: 20100525
  Serious: Yes (Hospitalization)
  Sender: FDA-Public Use
  Company Number: US-PFIZER INC-2009219073

PATIENT
  Sex: Female
  Weight: 111.11 kg

DRUGS (18)
  1. BLINDED *NAPROXEN [Suspect]
     Indication: OSTEOARTHRITIS
     Dosage: UNK
     Route: 048
     Dates: start: 20071115
  2. BLINDED *NO SUBJECT DRUG [Suspect]
     Indication: OSTEOARTHRITIS
     Dosage: UNK
     Route: 048
     Dates: start: 20071115
  3. BLINDED *PLACEBO [Suspect]
     Indication: OSTEOARTHRITIS
     Dosage: UNK
     Route: 048
     Dates: start: 20071115
  4. CELECOXIB [Suspect]
     Indication: OSTEOARTHRITIS
     Dosage: UNK
     Route: 048
     Dates: start: 20071115
  5. IBUPROFEN [Suspect]
     Indication: OSTEOARTHRITIS
     Dosage: UNK
     Route: 048
     Dates: start: 20071115
  6. BLINDED NAPROXEN [Suspect]
     Dosage: UNK
     Route: 048
     Dates: start: 20071115
  7. NEXIUM [Concomitant]
     Indication: GASTROOESOPHAGEAL REFLUX DISEASE
     Dosage: 40 MG, 1X/DAY
     Route: 048
     Dates: start: 20071128
  8. DARVOCET [Concomitant]
     Dosage: UNK
     Dates: start: 20050603
  9. BENTYL [Concomitant]
     Dosage: UNK
     Dates: start: 20000721
  10. DOXEPIN [Concomitant]
     Dosage: UNK
     Dates: start: 20000101
  11. ALLEGRA [Concomitant]
     Dosage: UNK
     Dates: start: 20020701
  12. FLUOXETINE [Concomitant]
     Dosage: UNK
     Dates: start: 20010108
  13. ZESTRIL [Concomitant]
     Dosage: UNK
     Dates: start: 20000406
  14. PROVIGIL [Concomitant]
     Dosage: UNK
     Dates: start: 20080610
  15. NORFLEX [Concomitant]
     Dosage: UNK
     Dates: start: 20061005
  16. MAXAIR [Concomitant]
     Dosage: UNK
     Dates: start: 20010208
  17. SIMVASTATIN [Concomitant]
     Dosage: UNK
     Dates: start: 20070521
  18. ADVAIR DISKUS 100/50 [Concomitant]
     Dosage: UNK
     Dates: start: 20050603

REACTIONS (2)
  - OESOPHAGEAL SPASM [None]
  - VISION BLURRED [None]
